FAERS Safety Report 18746654 (Version 1)
Quarter: 2021Q1

REPORT INFORMATION
  Report Type: Spontaneous
  Country: CA (occurrence: CA)
  Receive Date: 20210115
  Receipt Date: 20210115
  Transmission Date: 20210419
  Serious: Yes (Disabling, Other)
  Sender: FDA-Public Use
  Company Number: CA-PURDUE-USA-2020-0197483

PATIENT
  Sex: Male

DRUGS (2)
  1. OXYCONTIN [Suspect]
     Active Substance: OXYCODONE HYDROCHLORIDE
     Indication: PAIN
     Dosage: UNKNOWN
     Route: 048
  2. OXYCODONE HYDROCHLORIDE. [Suspect]
     Active Substance: OXYCODONE HYDROCHLORIDE
     Indication: PAIN
     Dosage: UNKNOWN
     Route: 048

REACTIONS (23)
  - Unevaluable event [Unknown]
  - Fatigue [Unknown]
  - Restlessness [Unknown]
  - Insomnia [Unknown]
  - Irritability [Unknown]
  - Depression [Unknown]
  - Hyperhidrosis [None]
  - Hernia [Unknown]
  - Sneezing [Unknown]
  - Somnolence [Unknown]
  - Rhinorrhoea [None]
  - Road traffic accident [Unknown]
  - Disturbance in attention [Unknown]
  - Disability [Unknown]
  - Drug withdrawal syndrome [Unknown]
  - Hunger [Unknown]
  - Influenza like illness [Unknown]
  - Lethargy [Unknown]
  - Mood swings [Unknown]
  - Pain [Unknown]
  - Drug dependence [Unknown]
  - Constipation [Unknown]
  - Restless legs syndrome [Unknown]
